FAERS Safety Report 12957987 (Version 1)
Quarter: 2016Q4

REPORT INFORMATION
  Report Type: Spontaneous
  Country: US (occurrence: US)
  Receive Date: 20161119
  Receipt Date: 20161119
  Transmission Date: 20170207
  Serious: Yes (Other)
  Sender: FDA-Public Use
  Company Number: US-AKORN PHARMACEUTICALS-2016AKN00720

PATIENT
  Sex: Male
  Weight: 61.22 kg

DRUGS (2)
  1. MYORISAN [Suspect]
     Active Substance: ISOTRETINOIN
     Indication: ACNE
     Dosage: 1 CAPSULES, 2X/DAY
     Dates: start: 20160803, end: 201609
  2. DESONIDE. [Concomitant]
     Active Substance: DESONIDE
     Dosage: 1 DOSAGE UNITS, 2X/DAY
     Route: 061

REACTIONS (8)
  - Alopecia [Recovering/Resolving]
  - Lip dry [Recovering/Resolving]
  - Anger [Recovering/Resolving]
  - Mood swings [Recovering/Resolving]
  - Sleep disorder [Recovering/Resolving]
  - Arthralgia [Recovering/Resolving]
  - Depression [Recovering/Resolving]
  - Dry skin [Recovering/Resolving]

NARRATIVE: CASE EVENT DATE: 2016
